FAERS Safety Report 8986716 (Version 1)
Quarter: 2012Q4

REPORT INFORMATION
  Report Type: Spontaneous
  Country: US (occurrence: None)
  Receive Date: 20121109
  Receipt Date: 20121109
  Transmission Date: 20130627
  Serious: Yes (Other)
  Sender: FDA-Public Use
  Company Number: 2012S1000477

PATIENT
  Age: 56 Year
  Sex: Female
  Weight: 66 kg

DRUGS (6)
  1. CUBICIN [Suspect]
     Indication: STAPHYLOCOCCAL OSTEOMYELITIS
     Route: 042
     Dates: start: 20120523, end: 20120531
  2. LIPITOR [Concomitant]
  3. METOPROLOL [Concomitant]
  4. PLAVIX [Concomitant]
  5. TYLENOL [Concomitant]
  6. TRAMADOL [Concomitant]

REACTIONS (4)
  - Blood alkaline phosphatase increased [None]
  - Aspartate aminotransferase increased [None]
  - Alanine aminotransferase increased [None]
  - Blood creatine phosphokinase increased [None]
